FAERS Safety Report 19453818 (Version 1)
Quarter: 2021Q2

REPORT INFORMATION
  Report Type: Report from Study
  Country: FR (occurrence: FR)
  Receive Date: 20210623
  Receipt Date: 20210623
  Transmission Date: 20210717
  Serious: Yes (Death, Other)
  Sender: FDA-Public Use
  Company Number: FR-TAKEDA-FR201839655

PATIENT
  Age: 60 Year
  Sex: Male

DRUGS (14)
  1. TEDUGLUTIDE [Suspect]
     Active Substance: TEDUGLUTIDE
     Dosage: 3.2 MG (0.05 MG/KG), 7 DOSES PER WEEK
     Route: 065
     Dates: start: 20170609, end: 20181009
  2. SELENIUM [Concomitant]
     Active Substance: SELENIUM
     Indication: PROPHYLAXIS
     Dosage: 1 TAB, QD
     Route: 048
     Dates: start: 20180903
  3. PHOSPHONEUROS [Concomitant]
     Active Substance: CALCIUM PHOSPHATE, DIBASIC, ANHYDROUS\MAGNESIUM GLYCEROPHOSPHATE\PHOSPHORIC ACID\SODIUM PHOSPHATE, DIBASIC
     Indication: PROPHYLAXIS
     Dosage: 100 GTT DROPS, QD
     Route: 048
  4. SPASFON [Concomitant]
     Indication: PROPHYLAXIS
     Dosage: 1 TABS
     Route: 048
  5. AMIKLIN [Concomitant]
     Active Substance: AMIKACIN SULFATE
     Indication: PSEUDOMONAL SEPSIS
     Dosage: UNK
     Route: 065
  6. TEDUGLUTIDE [Suspect]
     Active Substance: TEDUGLUTIDE
     Indication: SHORT-BOWEL SYNDROME
     Dosage: 3.6 MG (0.05 MG/KG), 7 DOSES PER WEEK
     Route: 065
     Dates: start: 20160405, end: 20170608
  7. TEDUGLUTIDE [Suspect]
     Active Substance: TEDUGLUTIDE
     Indication: SHORT-BOWEL SYNDROME
     Dosage: 3.6 MG (0.05 MG/KG), 7 DOSES PER WEEK
     Route: 065
     Dates: start: 20160405, end: 20170608
  8. TEDUGLUTIDE [Suspect]
     Active Substance: TEDUGLUTIDE
     Indication: SHORT-BOWEL SYNDROME
     Dosage: 3.6 MG (0.05 MG/KG), 7 DOSES PER WEEK
     Route: 065
     Dates: start: 20160405, end: 20170608
  9. TEDUGLUTIDE [Suspect]
     Active Substance: TEDUGLUTIDE
     Indication: SHORT-BOWEL SYNDROME
     Dosage: 3.6 MG (0.05 MG/KG), 7 DOSES PER WEEK
     Route: 065
     Dates: start: 20160405, end: 20170608
  10. TEDUGLUTIDE [Suspect]
     Active Substance: TEDUGLUTIDE
     Dosage: 3.2 MG (0.05 MG/KG), 7 DOSES PER WEEK
     Route: 065
     Dates: start: 20170609, end: 20181009
  11. LAROSCORBINE [Concomitant]
     Active Substance: ASCORBIC ACID
     Indication: PROPHYLAXIS
     Dosage: 1 GRAM, QD
     Route: 048
     Dates: start: 20180903
  12. FORTUM [Concomitant]
     Active Substance: CEFTAZIDIME
     Indication: PSEUDOMONAL SEPSIS
     Dosage: UNK
     Route: 065
  13. TEDUGLUTIDE [Suspect]
     Active Substance: TEDUGLUTIDE
     Dosage: 3.2 MG (0.05 MG/KG), 7 DOSES PER WEEK
     Route: 065
     Dates: start: 20170609, end: 20181009
  14. TEDUGLUTIDE [Suspect]
     Active Substance: TEDUGLUTIDE
     Dosage: 3.2 MG (0.05 MG/KG), 7 DOSES PER WEEK
     Route: 065
     Dates: start: 20170609, end: 20181009

REACTIONS (2)
  - Peripheral artery aneurysm [Fatal]
  - Aneurysm ruptured [Fatal]

NARRATIVE: CASE EVENT DATE: 20181009
